FAERS Safety Report 21521222 (Version 1)
Quarter: 2022Q4

REPORT INFORMATION
  Report Type: Spontaneous
  Country: CN (occurrence: CN)
  Receive Date: 20221028
  Receipt Date: 20221028
  Transmission Date: 20230113
  Serious: Yes (Other)
  Sender: FDA-Public Use
  Company Number: CN-NOVARTISPH-NVSC2022CN241020

PATIENT
  Age: 37 Year
  Sex: Male

DRUGS (4)
  1. MYFORTIC [Suspect]
     Active Substance: MYCOPHENOLATE SODIUM
     Indication: Leukopenia
     Dosage: 90 MG, QD
     Route: 048
     Dates: start: 20220104, end: 20220228
  2. TACROLIMUS [Suspect]
     Active Substance: TACROLIMUS
     Indication: Leukopenia
     Dosage: 2 MG, QD
     Route: 048
     Dates: start: 20220118, end: 20220228
  3. MIZORIBINE [Suspect]
     Active Substance: MIZORIBINE
     Indication: Product used for unknown indication
     Dosage: UNK
     Route: 065
     Dates: end: 20220301
  4. THROMBOPOIETIN [Concomitant]
     Active Substance: THROMBOPOIETIN
     Indication: Product used for unknown indication
     Dosage: UNK
     Route: 065

REACTIONS (1)
  - Myelosuppression [Recovered/Resolved]

NARRATIVE: CASE EVENT DATE: 20220228
